FAERS Safety Report 23741724 (Version 1)
Quarter: 2024Q2

REPORT INFORMATION
  Report Type: Spontaneous
  Country: FR (occurrence: FR)
  Receive Date: 20240415
  Receipt Date: 20240415
  Transmission Date: 20240716
  Serious: Yes (Hospitalization)
  Sender: FDA-Public Use
  Company Number: FR-CELLTRION INC.-2024FR008661

PATIENT

DRUGS (1)
  1. INFLIXIMAB [Suspect]
     Active Substance: INFLIXIMAB
     Indication: Colitis
     Dosage: UNK
     Route: 042
     Dates: start: 20201110, end: 20210215

REACTIONS (2)
  - Dermatitis psoriasiform [Recovering/Resolving]
  - Tooth abscess [Recovered/Resolved]

NARRATIVE: CASE EVENT DATE: 20210301
